FAERS Safety Report 6527378-7 (Version None)
Quarter: 2010Q1

REPORT INFORMATION
  Report Type: 
  Country: None (occurrence: None)
  Receive Date: 20100104
  Receipt Date: 20100104
  Transmission Date: 20100710
  Serious: Yes (Other)
  Sender: FDA-Public Use
  Company Number: None

PATIENT
  Age: 53 Year
  Sex: Female
  Weight: 77.1115 kg

DRUGS (1)
  1. ZICAM COLD REMEDY RAPIDMELTS 25 QUICK DISSOLVE TABLETS, NO DOSE MC1153 [Suspect]
     Indication: NASOPHARYNGITIS
     Dosage: 1 TABLET DAILY PO
     Route: 048
     Dates: start: 20090320, end: 20090322

REACTIONS (2)
  - ANOSMIA [None]
  - HYPOSMIA [None]
